FAERS Safety Report 7243826-1 (Version None)
Quarter: 2011Q1

REPORT INFORMATION
  Report Type: 
  Country: None (occurrence: None)
  Receive Date: 20110125
  Receipt Date: 20101228
  Transmission Date: 20110831
  Serious: No
  Sender: FDA-Public Use
  Company Number: US-PFIZER INC-2010181913

PATIENT
  Sex: Female

DRUGS (4)
  1. ADVIL PM [Suspect]
     Indication: ANALGESIC THERAPY
     Dosage: 2 DF, AT BEDTIME AS NEEDED
     Route: 048
     Dates: end: 20101227
  2. ADVIL PM [Suspect]
     Indication: INSOMNIA
  3. ADVIL [Concomitant]
  4. DIPHENHYDRAMINE HYDROCHLORIDE/IBUPROFEN [Suspect]

REACTIONS (4)
  - DISCOMFORT [None]
  - MYALGIA [None]
  - MUSCLE DISORDER [None]
  - INSOMNIA [None]
